FAERS Safety Report 6404803-3 (Version None)
Quarter: 2009Q4

REPORT INFORMATION
  Report Type: 
  Country: None (occurrence: None)
  Receive Date: 20091016
  Receipt Date: 20091008
  Transmission Date: 20100525
  Serious: Yes (Other)
  Sender: FDA-Public Use
  Company Number: US-GILEAD-2009-0024715

PATIENT
  Age: 41 Year
  Sex: Female

DRUGS (3)
  1. TRUVADA [Suspect]
     Indication: HIV INFECTION
     Route: 048
  2. KALETRA [Concomitant]
     Indication: HIV INFECTION
     Route: 048
  3. NEVIRAPINE [Concomitant]
     Indication: HIV INFECTION
     Route: 048

REACTIONS (1)
  - ABORTION SPONTANEOUS [None]
